FAERS Safety Report 22322732 (Version 2)
Quarter: 2023Q4

REPORT INFORMATION
  Report Type: Report from Study
  Country: US (occurrence: US)
  Receive Date: 20230516
  Receipt Date: 20231106
  Transmission Date: 20240109
  Serious: Yes (Other)
  Sender: FDA-Public Use
  Company Number: US-ABBVIE-4767037

PATIENT
  Sex: Male

DRUGS (4)
  1. VENCLEXTA [Suspect]
     Active Substance: VENETOCLAX
     Indication: Mantle cell lymphoma
     Dosage: (20MG X 7 DAYS, 50MG X 7 DAYS, 100MG X 7 DAYS, 200MG X 7 DAYS).?LAST ADMIN DATE- 2023
     Route: 048
     Dates: start: 20230202
  2. VENCLEXTA [Suspect]
     Active Substance: VENETOCLAX
     Indication: Mantle cell lymphoma
     Dosage: STRENGTH: 100 MG, LAST ADMIN DATE: 2023?100 MILLIGRAMS OF VENCLEXTA IN THE MORNING AND 100 MILLIG...
     Route: 048
     Dates: start: 20230401
  3. VENCLEXTA [Suspect]
     Active Substance: VENETOCLAX
     Indication: Mantle cell lymphoma
     Dosage: FORM STRENGTH: 100 MG?BOTH IN THE MORNING
     Route: 048
     Dates: start: 20231024
  4. BRUKINSA [Concomitant]
     Active Substance: ZANUBRUTINIB
     Indication: Mantle cell lymphoma
     Dates: start: 20220413

REACTIONS (6)
  - Neoplasm malignant [Recovering/Resolving]
  - Diabetes mellitus [Unknown]
  - Single functional kidney [Unknown]
  - Splenomegaly [Recovered/Resolved]
  - Ingrowing nail [Unknown]
  - Cardiac disorder [Unknown]

NARRATIVE: CASE EVENT DATE: 20230101
